FAERS Safety Report 8953791 (Version 2)
Quarter: 2012Q4

REPORT INFORMATION
  Report Type: 
  Country: DE (occurrence: DE)
  Receive Date: 20121206
  Receipt Date: 20121228
  Transmission Date: 20130627
  Serious: Yes (Other)
  Sender: FDA-Public Use
  Company Number: DE-INCYTE CORPORATION-2012IN002487

PATIENT
  Age: 73 Year
  Sex: Female

DRUGS (1)
  1. JAKAVI [Suspect]
     Dosage: 5 mg x 2
     Route: 048
     Dates: start: 20120914

REACTIONS (5)
  - Haematoma [Unknown]
  - Swelling [Unknown]
  - Fluid retention [Unknown]
  - Soft tissue haemorrhage [Unknown]
  - Haemoglobin decreased [Unknown]
